FAERS Safety Report 20473949 (Version 2)
Quarter: 2024Q2

REPORT INFORMATION
  Report Type: Report from Study
  Country: US (occurrence: None)
  Receive Date: 20220215
  Receipt Date: 20240415
  Transmission Date: 20240716
  Serious: Yes (Death, Hospitalization, Other)
  Sender: FDA-Public Use
  Company Number: 2022A069145

PATIENT
  Sex: Male
  Weight: 87.1 kg

DRUGS (1)
  1. FARXIGA [Suspect]
     Active Substance: DAPAGLIFLOZIN PROPANEDIOL
     Dosage: UNKNOWN
     Route: 048

REACTIONS (8)
  - Acute kidney injury [Fatal]
  - Pulmonary embolism [Fatal]
  - Type 2 diabetes mellitus [Fatal]
  - Atrial fibrillation [Fatal]
  - Hyperthyroidism [Fatal]
  - Metabolic encephalopathy [Fatal]
  - Respiratory failure [Fatal]
  - COVID-19 [Fatal]
